FAERS Safety Report 6263105-9 (Version None)
Quarter: 2009Q3

REPORT INFORMATION
  Report Type: 
  Country: None (occurrence: None)
  Receive Date: 20090710
  Receipt Date: 20090629
  Transmission Date: 20100115
  Serious: Yes (Hospitalization, Other)
  Sender: FDA-Public Use
  Company Number: FR-SOLVAY-00308002925

PATIENT
  Age: 25933 Day
  Sex: Male

DRUGS (4)
  1. CREON [Suspect]
     Indication: DRUG USE FOR UNKNOWN INDICATION
     Dosage: DAILY DOSE:  UNKNOWN
     Route: 065
     Dates: start: 20061030
  2. SU-011,248 [Suspect]
     Indication: RENAL CANCER
     Dosage: DAILY DOSE: 50 MILLIGRAM(S)
     Route: 048
     Dates: start: 20051031, end: 20060305
  3. SU-011,248 [Suspect]
     Dosage: DAILY DOSE: 37.5 MILLIGRAM(S)
     Route: 048
     Dates: start: 20060321, end: 20060407
  4. SU-011,248 [Suspect]
     Dosage: DAILY DOSE: 25 MILLIGRAM(S)
     Route: 048
     Dates: start: 20060908

REACTIONS (3)
  - ABDOMINAL PAIN [None]
  - ASTHENIA [None]
  - VOMITING [None]
